FAERS Safety Report 14382122 (Version 3)
Quarter: 2018Q1

REPORT INFORMATION
  Report Type: Spontaneous
  Country: US (occurrence: US)
  Receive Date: 20180112
  Receipt Date: 20180207
  Transmission Date: 20180509
  Serious: Yes (Hospitalization)
  Sender: FDA-Public Use
  Company Number: PHHY2018US004340

PATIENT
  Age: 57 Year
  Sex: Female

DRUGS (2)
  1. COMBIPATCH [Suspect]
     Active Substance: ESTRADIOL\NORETHINDRONE ACETATE
     Indication: IRRITABILITY
     Dosage: UNK
     Route: 062
     Dates: start: 201712
  2. COMBIPATCH [Suspect]
     Active Substance: ESTRADIOL\NORETHINDRONE ACETATE
     Indication: NIGHT SWEATS
     Dosage: UNK
     Route: 062
     Dates: start: 201702, end: 201707

REACTIONS (8)
  - Retching [Unknown]
  - Drug ineffective [Recovered/Resolved]
  - Product adhesion issue [Recovered/Resolved]
  - Product storage error [Recovered/Resolved]
  - Product quality issue [Recovered/Resolved]
  - Dehydration [Unknown]
  - Dyspepsia [Unknown]
  - Off label use [Not Recovered/Not Resolved]
